FAERS Safety Report 11389042 (Version 1)
Quarter: 2015Q3

REPORT INFORMATION
  Report Type: Spontaneous
  Country: US (occurrence: US)
  Receive Date: 20150817
  Receipt Date: 20150817
  Transmission Date: 20151125
  Serious: Yes (Other)
  Sender: FDA-Public Use
  Company Number: US-TEVA-586366USA

PATIENT
  Age: 21 Year

DRUGS (1)
  1. NUVIGIL [Suspect]
     Active Substance: ARMODAFINIL
     Dosage: 150 MILLIGRAM DAILY;
     Route: 065
     Dates: start: 20150727

REACTIONS (2)
  - Altered state of consciousness [Unknown]
  - Muscle spasms [Unknown]
